FAERS Safety Report 15782994 (Version 2)
Quarter: 2019Q1

REPORT INFORMATION
  Report Type: Spontaneous
  Country: CH (occurrence: CH)
  Receive Date: 20190102
  Receipt Date: 20190110
  Transmission Date: 20190417
  Serious: Yes (Hospitalization)
  Sender: FDA-Public Use
  Company Number: CH-BAYER-2018-244605

PATIENT
  Age: 66 Year
  Sex: Female
  Weight: 58 kg

DRUGS (7)
  1. ASPIRIN CARDIO 100 MG [Suspect]
     Active Substance: ASPIRIN
     Dosage: 100 MG, UNK
     Route: 048
     Dates: start: 201811
  2. ACTILYSE [Concomitant]
     Active Substance: ALTEPLASE
     Dosage: (55)IN TOTAL;
     Route: 042
     Dates: start: 20181104, end: 20181104
  3. FRAGMIN [Suspect]
     Active Substance: DALTEPARIN SODIUM
     Dosage: 5000 IU, UNK
     Route: 058
     Dates: start: 20181106
  4. ATORVASTATIN PFIZER [Suspect]
     Active Substance: ATORVASTATIN
     Dosage: 80 MG, UNK
     Route: 048
     Dates: start: 20181106, end: 20181204
  5. ASPIRIN CARDIO 300 MG [Suspect]
     Active Substance: ASPIRIN
     Dosage: 300 MG, UNK
     Route: 048
     Dates: start: 20181106, end: 201811
  6. TRIATEC [RAMIPRIL] [Suspect]
     Active Substance: RAMIPRIL
     Dosage: 2.5 MG, UNK
     Route: 048
     Dates: start: 20181113, end: 20181211
  7. MACROGOL;POTASSIUM CHLORIDE;SODIUM BICARBONATE;SODIUM CHLORIDE [Concomitant]
     Dosage: 1 DF, UNK
     Route: 048
     Dates: start: 201811

REACTIONS (1)
  - Hepatitis cholestatic [Not Recovered/Not Resolved]

NARRATIVE: CASE EVENT DATE: 20181206
